FAERS Safety Report 24311672 (Version 2)
Quarter: 2024Q4

REPORT INFORMATION
  Report Type: Spontaneous
  Country: US (occurrence: US)
  Receive Date: 20240912
  Receipt Date: 20241104
  Transmission Date: 20250115
  Serious: Yes (Other)
  Sender: PFIZER
  Company Number: US-PFIZER INC-202400253708

PATIENT
  Age: 63 Year
  Sex: Female
  Weight: 104.33 kg

DRUGS (2)
  1. PREMARIN [Suspect]
     Active Substance: ESTROGENS, CONJUGATED
     Indication: Menopause
     Dosage: 0.0625MG, SHE BELIEVES, IS CURRENT DOSE
  2. PREMARIN [Suspect]
     Active Substance: ESTROGENS, CONJUGATED
     Indication: Hot flush

REACTIONS (11)
  - Hysterectomy [Unknown]
  - Drug ineffective [Unknown]
  - Night sweats [Not Recovered/Not Resolved]
  - Breast swelling [Not Recovered/Not Resolved]
  - Vulvovaginal dryness [Not Recovered/Not Resolved]
  - Breast tenderness [Unknown]
  - Memory impairment [Unknown]
  - Feeling abnormal [Unknown]
  - Brain fog [Unknown]
  - Hyperhidrosis [Unknown]
  - Incorrect dose administered [Unknown]
